FAERS Safety Report 14454019 (Version 1)
Quarter: 2018Q1

REPORT INFORMATION
  Report Type: Spontaneous
  Country: US (occurrence: US)
  Receive Date: 20180129
  Receipt Date: 20180129
  Transmission Date: 20180509
  Serious: No
  Sender: FDA-Public Use
  Company Number: US-ALLERGAN-1746891US

PATIENT
  Age: 41 Year
  Sex: Female
  Weight: 54 kg

DRUGS (3)
  1. TAZAROTENE UNK [Suspect]
     Active Substance: TAZAROTENE
     Dosage: UNK
  2. CLOBETASOL [Concomitant]
     Active Substance: CLOBETASOL
     Indication: TRANSIENT ACANTHOLYTIC DERMATOSIS
     Dosage: UNK
     Dates: start: 201703
  3. TAZAROTENE UNK [Suspect]
     Active Substance: TAZAROTENE
     Indication: TRANSIENT ACANTHOLYTIC DERMATOSIS
     Dosage: UNK UNK, QHS
     Route: 061
     Dates: start: 20170804, end: 20170809

REACTIONS (5)
  - Rash erythematous [Not Recovered/Not Resolved]
  - Application site pain [Not Recovered/Not Resolved]
  - Off label use [Unknown]
  - Application site rash [Not Recovered/Not Resolved]
  - Application site pruritus [Not Recovered/Not Resolved]

NARRATIVE: CASE EVENT DATE: 20170809
